FAERS Safety Report 24212991 (Version 2)
Quarter: 2024Q3

REPORT INFORMATION
  Report Type: Spontaneous
  Country: DE (occurrence: DE)
  Receive Date: 20240815
  Receipt Date: 20240826
  Transmission Date: 20241016
  Serious: No
  Sender: UCB
  Company Number: DE-UCBSA-2024039311

PATIENT
  Sex: Female

DRUGS (1)
  1. NEUPRO [Suspect]
     Active Substance: ROTIGOTINE
     Indication: Product used for unknown indication
     Dosage: 2 MILLIGRAM, ONCE DAILY (QD)

REACTIONS (1)
  - Product adhesion issue [Unknown]
